FAERS Safety Report 21984804 (Version 1)
Quarter: 2023Q1

REPORT INFORMATION
  Report Type: Report from Study
  Country: SE (occurrence: SE)
  Receive Date: 20230213
  Receipt Date: 20230213
  Transmission Date: 20230418
  Serious: Yes (Other)
  Sender: FDA-Public Use
  Company Number: SE-PFIZER INC-PV202300024404

PATIENT
  Age: 36 Year
  Sex: Female

DRUGS (8)
  1. VORICONAZOLE [Suspect]
     Active Substance: VORICONAZOLE
     Dosage: UNK
     Route: 042
  2. BARICITINIB [Concomitant]
     Active Substance: BARICITINIB
     Indication: Mucocutaneous candidiasis
     Dosage: 2 MG, DAILY (0.03 MG/KG)
     Dates: start: 2019
  3. FUCONAZOLE [Concomitant]
     Indication: Mucocutaneous candidiasis
     Dosage: UNK
  4. FUCONAZOLE [Concomitant]
     Indication: Prophylaxis
  5. VALACYCLOVIR HYDROCHLORIDE [Concomitant]
     Active Substance: VALACYCLOVIR HYDROCHLORIDE
     Indication: Mucocutaneous candidiasis
     Dosage: UNK
  6. VALACYCLOVIR HYDROCHLORIDE [Concomitant]
     Active Substance: VALACYCLOVIR HYDROCHLORIDE
     Indication: Prophylaxis
  7. NYSTATIN [Concomitant]
     Active Substance: NYSTATIN
     Indication: Mucocutaneous candidiasis
  8. AMPHOTERICIN B [Concomitant]
     Active Substance: AMPHOTERICIN B
     Indication: Mucocutaneous candidiasis

REACTIONS (1)
  - Mucosal inflammation [Recovered/Resolved]
